FAERS Safety Report 5740071-3 (Version None)
Quarter: 2008Q2

REPORT INFORMATION
  Report Type: 
  Country: None (occurrence: None)
  Receive Date: 20080513
  Receipt Date: 20080428
  Transmission Date: 20081010
  Serious: Yes (Death, Hospitalization)
  Sender: FDA-Public Use
  Company Number: 2008000798

PATIENT
  Age: 53 Year
  Sex: Male
  Weight: 54 kg

DRUGS (8)
  1. ERLOTINIB(ERLOTINIB) (TABLET) (ERLOTINIB) [Suspect]
     Indication: NON-SMALL CELL LUNG CANCER
     Dosage: (150 MG,QD), ORAL
     Route: 048
     Dates: start: 20080222
  2. BEVACIZUMAB(INJECTION FOR INFUSION) [Suspect]
     Indication: NON-SMALL CELL LUNG CANCER
     Dosage: (870 MG,Q3W),INTRAVENOUS
     Route: 042
     Dates: start: 20080222
  3. BEVACIZUMAB(INJECTION FOR INFUSION) [Suspect]
  4. LIDOCAINE [Concomitant]
  5. CHLORPHENIRAMINE MALEATE [Concomitant]
  6. BROMHEXINE HYDROCHLORIDE(BROMHEXINE HYDROCHLORIDE) [Concomitant]
  7. TERBUTALINE SULFATE [Concomitant]
  8. ALPRAZOLAM [Concomitant]

REACTIONS (8)
  - ATELECTASIS [None]
  - BLOOD ALKALINE PHOSPHATASE INCREASED [None]
  - BLOOD UREA INCREASED [None]
  - LOWER RESPIRATORY TRACT INFECTION [None]
  - LUNG CONSOLIDATION [None]
  - PLEURAL EFFUSION [None]
  - SINUS TACHYCARDIA [None]
  - WHITE BLOOD CELL COUNT INCREASED [None]
